FAERS Safety Report 23580793 (Version 1)
Quarter: 2024Q1

REPORT INFORMATION
  Report Type: Spontaneous
  Country: CA (occurrence: CA)
  Receive Date: 20240229
  Receipt Date: 20240229
  Transmission Date: 20240410
  Serious: Yes (Other)
  Sender: FDA-Public Use
  Company Number: CA-TEVA-VS-3161179

PATIENT
  Age: 94 Year
  Sex: Female

DRUGS (1)
  1. GLYBURIDE [Suspect]
     Active Substance: GLYBURIDE
     Route: 065

REACTIONS (1)
  - Confusional state [Recovered/Resolved]
